FAERS Safety Report 7075139-5 (Version None)
Quarter: 2010Q4

REPORT INFORMATION
  Report Type: 
  Country: None (occurrence: None)
  Receive Date: 20101029
  Receipt Date: 20100607
  Transmission Date: 20110411
  Serious: No
  Sender: FDA-Public Use
  Company Number: US-WYE-H15676510

PATIENT
  Age: 49 Year
  Sex: Male
  Weight: 77.18 kg

DRUGS (1)
  1. ALAVERT [Suspect]
     Indication: SEASONAL ALLERGY
     Route: 048
     Dates: start: 20100601, end: 20100604

REACTIONS (4)
  - ABNORMAL SENSATION IN EYE [None]
  - DECREASED APPETITE [None]
  - FATIGUE [None]
  - REACTION TO FOOD ADDITIVE [None]
